FAERS Safety Report 17228902 (Version 1)
Quarter: 2020Q1

REPORT INFORMATION
  Report Type: Spontaneous
  Country: US (occurrence: US)
  Receive Date: 20200103
  Receipt Date: 20200103
  Transmission Date: 20200409
  Serious: No
  Sender: FDA-Public Use
  Company Number: US-009507513-1912USA011618

PATIENT
  Age: 85 Year
  Sex: Female

DRUGS (4)
  1. CUBICIN [Suspect]
     Active Substance: DAPTOMYCIN
     Indication: EXTRADURAL ABSCESS
     Dosage: UNK
  2. CUBICIN [Suspect]
     Active Substance: DAPTOMYCIN
     Indication: ARTHRITIS BACTERIAL
  3. RIFAMPIN. [Concomitant]
     Active Substance: RIFAMPIN
     Indication: EXTRADURAL ABSCESS
     Dosage: UNK
  4. RIFAMPIN. [Concomitant]
     Active Substance: RIFAMPIN
     Indication: ARTHRITIS BACTERIAL

REACTIONS (1)
  - Off label use [Unknown]
